FAERS Safety Report 12310217 (Version 1)
Quarter: 2016Q2

REPORT INFORMATION
  Report Type: Spontaneous
  Country: CA (occurrence: None)
  Receive Date: 20160426
  Receipt Date: 20160426
  Transmission Date: 20160815
  Serious: No
  Sender: FDA-Public Use
  Company Number: None

PATIENT
  Age: 26 Year
  Sex: Female
  Weight: 58.97 kg

DRUGS (4)
  1. NUVARING [Concomitant]
     Active Substance: ETHINYL ESTRADIOL\ETONOGESTREL
  2. MULTIVITAMIN [Concomitant]
     Active Substance: VITAMINS
  3. PROTOPIC [Suspect]
     Active Substance: TACROLIMUS
     Indication: DERMATITIS CONTACT
     Dosage: 42 APPLICATION  APPLIED TO A SULFACE, USUALLY THE SKIN
     Dates: start: 20160212, end: 20160402
  4. OMEGA 3 [Concomitant]
     Active Substance: OMEGA-3 FATTY ACIDS

REACTIONS (9)
  - Application site pruritus [None]
  - Application site pain [None]
  - Hyperhidrosis [None]
  - Application site reaction [None]
  - Application site swelling [None]
  - Eye irritation [None]
  - Anxiety [None]
  - Application site erythema [None]
  - Temperature intolerance [None]

NARRATIVE: CASE EVENT DATE: 20160222
